FAERS Safety Report 9200119 (Version 1)
Quarter: 2013Q1

REPORT INFORMATION
  Report Type: Spontaneous
  Country: DE (occurrence: DE)
  Receive Date: 20130329
  Receipt Date: 20130329
  Transmission Date: 20140127
  Serious: Yes (Life-Threatening, Hospitalization)
  Sender: FDA-Public Use
  Company Number: DE-ROCHE-1207885

PATIENT
  Sex: Male
  Weight: 66 kg

DRUGS (5)
  1. PEGASYS [Suspect]
     Indication: HEPATITIS C
     Route: 065
     Dates: start: 20120526
  2. VICTRELIS [Concomitant]
     Indication: HEPATITIS C
     Route: 065
     Dates: start: 20120503
  3. REBETOL [Concomitant]
     Indication: HEPATITIS C
     Route: 065
     Dates: start: 20120524
  4. PEGINTRON [Concomitant]
     Indication: HEPATITIS C
     Route: 065
     Dates: start: 20120524
  5. PARACETAMOL [Concomitant]
     Dosage: AS REQIURED
     Route: 065
     Dates: start: 20120524

REACTIONS (2)
  - Angina pectoris [Recovered/Resolved]
  - Coronary artery disease [Recovered/Resolved]
